FAERS Safety Report 9077928 (Version 1)
Quarter: 2013Q1

REPORT INFORMATION
  Report Type: Report from Study
  Country: US (occurrence: US)
  Receive Date: 20130130
  Receipt Date: 20130130
  Transmission Date: 20140127
  Serious: No
  Sender: FDA-Public Use
  Company Number: US-ABBOTT-12P-163-0957388-00

PATIENT
  Age: 57 Year
  Sex: Female

DRUGS (14)
  1. HUMIRA 40 MG/0.8 ML PEN [Suspect]
     Indication: CROHN^S DISEASE
     Dates: start: 201108
  2. GLYBURIDE [Concomitant]
     Indication: DIABETES MELLITUS
     Dosage: 1/2 PILL DAILY
  3. AEROBID [Concomitant]
     Indication: RESPIRATORY DISORDER
  4. ASA [Concomitant]
     Indication: CARDIAC DISORDER
  5. BISOPROLOL [Concomitant]
     Indication: BLOOD PRESSURE
     Dosage: 1 PILL DAILY
  6. IMODIUM [Concomitant]
     Indication: DIARRHOEA
  7. ALLOPURINOL [Concomitant]
     Indication: GOUT
  8. CALCITRIOL [Concomitant]
     Indication: PRODUCT USED FOR UNKNOWN INDICATION
  9. NEXIUM [Concomitant]
     Indication: GASTROOESOPHAGEAL REFLUX DISEASE
  10. LYRICA [Concomitant]
     Indication: PAIN
  11. AMBIEN [Concomitant]
     Indication: INSOMNIA
     Dosage: AT NIGHT
  12. REQUIP [Concomitant]
     Indication: UNEVALUABLE EVENT
  13. LIPITOR [Concomitant]
     Indication: BLOOD CHOLESTEROL
  14. MAGNESIUM [Concomitant]
     Indication: PRODUCT USED FOR UNKNOWN INDICATION

REACTIONS (5)
  - Fatigue [Not Recovered/Not Resolved]
  - Urinary tract infection [Not Recovered/Not Resolved]
  - Asthenia [Not Recovered/Not Resolved]
  - Bacterial infection [Not Recovered/Not Resolved]
  - Wrong technique in drug usage process [Not Recovered/Not Resolved]
